FAERS Safety Report 4575722-2 (Version None)
Quarter: 2005Q1

REPORT INFORMATION
  Report Type: 
  Country: None (occurrence: None)
  Receive Date: 20050201
  Receipt Date: 20050201
  Transmission Date: 20050727
  Serious: Yes (Other)
  Sender: FDA-Public Use
  Company Number: None

PATIENT
  Age: 15 Year
  Sex: Male
  Weight: 51.2 kg

DRUGS (8)
  1. REMICADE [Suspect]
     Indication: CROHN'S DISEASE
     Dosage: 300 MG IV -} (5MG/KG)
     Route: 042
     Dates: start: 20040726
  2. REMICADE [Suspect]
     Indication: CROHN'S DISEASE
     Dosage: 300 MG IV -} (5MG/KG)
     Route: 042
     Dates: start: 20040807
  3. REMICADE [Suspect]
     Indication: CROHN'S DISEASE
     Dosage: 300 MG IV -} (5MG/KG)
     Route: 042
     Dates: start: 20040904
  4. REMICADE [Suspect]
     Indication: CROHN'S DISEASE
     Dosage: 300 MG IV -} (5MG/KG)
     Route: 042
     Dates: start: 20041113
  5. AZATHIOPRINE [Concomitant]
  6. M.V.I. [Concomitant]
  7. PENTASA [Concomitant]
  8. PREDNISONE [Concomitant]

REACTIONS (2)
  - AMNESIA [None]
  - EDUCATIONAL PROBLEM [None]
